FAERS Safety Report 14520713 (Version 1)
Quarter: 2018Q1

REPORT INFORMATION
  Report Type: Report from Study
  Country: US (occurrence: US)
  Receive Date: 20180212
  Receipt Date: 20180212
  Transmission Date: 20180509
  Serious: Yes (Hospitalization, Other)
  Sender: FDA-Public Use
  Company Number: US-AMAG PHARMACEUTICALS, INC.-AMAG201703373

PATIENT

DRUGS (5)
  1. MAKENA [Suspect]
     Active Substance: HYDROXYPROGESTERONE CAPROATE
     Indication: PREMATURE DELIVERY
     Dosage: 250 MG/ML, WEEKLY
     Route: 030
     Dates: start: 20170822, end: 20171009
  2. UNISOM SLEEPTABS [Concomitant]
     Active Substance: DOXYLAMINE SUCCINATE
     Indication: NAUSEA
     Dosage: 25 MG, UNK
     Route: 065
     Dates: start: 20170801
  3. B6 [Concomitant]
     Active Substance: PYRIDOXINE HYDROCHLORIDE
     Indication: NAUSEA
     Dosage: 25 MG, UNK
     Route: 065
     Dates: start: 20170801
  4. PRENATAL VITAMINS [Concomitant]
     Active Substance: VITAMINS
     Indication: PREGNANCY
     Dosage: 27MG IRON- IMG TAB
     Route: 065
  5. PRENATAL VITAMINS [Concomitant]
     Active Substance: VITAMINS
     Indication: POSTPARTUM STATE

REACTIONS (6)
  - Amniotic cavity infection [Unknown]
  - Premature delivery [Recovered/Resolved]
  - Anxiety [Unknown]
  - Cervix cerclage procedure [Unknown]
  - Pulmonary oedema [Unknown]
  - Blood potassium decreased [Unknown]

NARRATIVE: CASE EVENT DATE: 20170823
